FAERS Safety Report 15294436 (Version 1)
Quarter: 2018Q3

REPORT INFORMATION
  Report Type: Spontaneous
  Country: US (occurrence: US)
  Receive Date: 20180820
  Receipt Date: 20180820
  Transmission Date: 20181010
  Serious: Yes (Hospitalization, Other)
  Sender: FDA-Public Use
  Company Number: US-AUROBINDO-AUR-APL-2018-041376

PATIENT
  Age: 8 Year
  Sex: Male

DRUGS (2)
  1. PREDNISONE. [Suspect]
     Active Substance: PREDNISONE
     Indication: T-CELL TYPE ACUTE LEUKAEMIA
     Dosage: 2 MILLIGRAM/KILOGRAM, DAILY
  2. METHOTREXATE. [Suspect]
     Active Substance: METHOTREXATE
     Indication: T-CELL TYPE ACUTE LEUKAEMIA
     Dosage: UNK
     Route: 037

REACTIONS (6)
  - Psychiatric symptom [Recovered/Resolved]
  - Irritability [Recovered/Resolved]
  - Substance-induced psychotic disorder [Recovered/Resolved]
  - Suicidal ideation [Recovered/Resolved]
  - Affect lability [Recovered/Resolved]
  - Psychotic disorder [Recovered/Resolved]
